FAERS Safety Report 24918973 (Version 1)
Quarter: 2025Q1

REPORT INFORMATION
  Report Type: Spontaneous
  Country: US (occurrence: US)
  Receive Date: 20250204
  Receipt Date: 20250204
  Transmission Date: 20250408
  Serious: Yes (Other)
  Sender: NOVO NORDISK
  Company Number: US-NOVOPROD-1330423

PATIENT
  Sex: Female

DRUGS (1)
  1. TRESIBA [Suspect]
     Active Substance: INSULIN DEGLUDEC
     Indication: Diabetes mellitus
     Dosage: 60 IU, QD
     Route: 058
     Dates: start: 20150101

REACTIONS (3)
  - Conjunctival haemorrhage [Unknown]
  - Eye laser surgery [Unknown]
  - Visual impairment [Unknown]
